FAERS Safety Report 5858895-0 (Version None)
Quarter: 2008Q3

REPORT INFORMATION
  Report Type: 
  Country: None (occurrence: None)
  Receive Date: 20080825
  Receipt Date: 20080808
  Transmission Date: 20090109
  Serious: Yes (Hospitalization)
  Sender: FDA-Public Use
  Company Number: A-US2008-19083

PATIENT
  Age: 67 Year
  Sex: Male

DRUGS (12)
  1. TRACLEER [Suspect]
     Indication: PULMONARY ARTERIAL HYPERTENSION
     Dosage: 125MG, BID, ORAL
     Route: 048
  2. REVATIO [Concomitant]
  3. TOPROL XL (METOPROLOL SUCCIANTE) [Concomitant]
  4. ALBUTEROL [Concomitant]
  5. ADVAIR (SALMETEROL XINAFOATE, FLUTICASONE PROPIONATE) [Concomitant]
  6. ADVAIR (SALMETEROL XINAFOATE, FLUTICASONE PROPIONATE) [Concomitant]
  7. ATROVENT [Concomitant]
  8. SPIRVA (TIOTROPIUM BROMIDE) [Concomitant]
  9. ACTOS [Concomitant]
  10. LASIX [Concomitant]
  11. POTASSIUM CHLORIDE [Concomitant]
  12. HYDROCORTISONE (HYDROCOTISONE) [Concomitant]

REACTIONS (21)
  - ALANINE AMINOTRANSFERASE INCREASED [None]
  - ASPARTATE AMINOTRANSFERASE INCREASED [None]
  - BLOOD ALKALINE PHOSPHATASE INCREASED [None]
  - BLOOD BILIRUBIN INCREASED [None]
  - BLOOD GLUCOSE INCREASED [None]
  - DECREASED APPETITE [None]
  - DEEP VEIN THROMBOSIS [None]
  - DYSPNOEA [None]
  - GASTROINTESTINAL HAEMORRHAGE [None]
  - HEPATIC NEOPLASM MALIGNANT [None]
  - HYPOTENSION [None]
  - LIVER FUNCTION TEST ABNORMAL [None]
  - LYMPHADENOPATHY MEDIASTINAL [None]
  - METASTASES TO LUNG [None]
  - METASTATIC NEOPLASM [None]
  - OXYGEN CONSUMPTION INCREASED [None]
  - PLEURAL EFFUSION [None]
  - PNEUMONIA [None]
  - PORTAL VEIN THROMBOSIS [None]
  - RECTAL HAEMORRHAGE [None]
  - WEIGHT DECREASED [None]
